FAERS Safety Report 9855994 (Version 1)
Quarter: 2013Q4

REPORT INFORMATION
  Report Type: Spontaneous
  Country: US (occurrence: None)
  Receive Date: 20131226
  Receipt Date: 20131226
  Transmission Date: 20140711
  Serious: No
  Sender: FDA-Public Use
  Company Number: PHEH2013US012829

PATIENT
  Age: 37 Year
  Sex: Female

DRUGS (7)
  1. GILENYA [Suspect]
     Route: 048
     Dates: start: 20130502
  2. PROTONIX [Concomitant]
  3. DEPAKOTE (VALPROATE SEMISODIUM) [Concomitant]
  4. ERYPED (ERYTHROMYCIN ETHYLSUCCINATE) [Concomitant]
  5. AMLODIPINE (AMLODIPINE) [Concomitant]
  6. DOXYCYCLINE (DOXYCYCLINE) [Concomitant]
  7. ROBITUSSIN (AMYLMETACRESCOL, DICHLOROBENZYL ALCOHOL) [Concomitant]

REACTIONS (2)
  - Palpitations [None]
  - Dyspnoea [None]
